FAERS Safety Report 9651085 (Version 2)
Quarter: 2013Q4

REPORT INFORMATION
  Report Type: Spontaneous
  Country: IT (occurrence: IT)
  Receive Date: 20131029
  Receipt Date: 20131031
  Transmission Date: 20140711
  Serious: Yes (Other)
  Sender: FDA-Public Use
  Company Number: IT-RANBAXY-2013RR-74565

PATIENT
  Age: 32 Year
  Sex: Female

DRUGS (1)
  1. AMOXICILLIN/CLAVULANIC ACID [Suspect]
     Indication: CYSTITIS
     Dosage: 1 DF DAILY
     Route: 048
     Dates: start: 20130908, end: 20130909

REACTIONS (2)
  - Lip oedema [Recovered/Resolved]
  - Throat tightness [Recovered/Resolved]
